FAERS Safety Report 19624904 (Version 7)
Quarter: 2022Q4

REPORT INFORMATION
  Report Type: Report from Study
  Country: US (occurrence: US)
  Receive Date: 20210728
  Receipt Date: 20221219
  Transmission Date: 20230113
  Serious: No
  Sender: FDA-Public Use
  Company Number: NVSC2021US150705

PATIENT
  Age: 41 Year
  Sex: Male

DRUGS (2)
  1. KESIMPTA [Suspect]
     Active Substance: OFATUMUMAB
     Indication: Multiple sclerosis
     Dosage: 20 MG, UNK
     Route: 058
     Dates: start: 20210626
  2. KESIMPTA [Suspect]
     Active Substance: OFATUMUMAB
     Dosage: 20 GTT (DROP), QMO
     Route: 058

REACTIONS (9)
  - Hyperhidrosis [Unknown]
  - Gastric disorder [Unknown]
  - Decreased activity [Unknown]
  - Chills [Unknown]
  - Pain [Unknown]
  - Pyrexia [Unknown]
  - Influenza like illness [Unknown]
  - Product storage error [Unknown]
  - Peripheral swelling [Recovering/Resolving]

NARRATIVE: CASE EVENT DATE: 20210627
